FAERS Safety Report 19077576 (Version 2)
Quarter: 2024Q2

REPORT INFORMATION
  Report Type: Report from Study
  Country: JP (occurrence: JP)
  Receive Date: 20210331
  Receipt Date: 20240528
  Transmission Date: 20240716
  Serious: Yes (Other)
  Sender: FDA-Public Use
  Company Number: JP-RECORDATI RARE DISEASES INC.-2021001191

PATIENT

DRUGS (10)
  1. NEOPROFEN [Suspect]
     Active Substance: IBUPROFEN LYSINE
     Indication: Patent ductus arteriosus
     Dosage: 7.5 MG
     Route: 042
     Dates: start: 20201013, end: 20201013
  2. NEOPROFEN [Suspect]
     Active Substance: IBUPROFEN LYSINE
     Dosage: 7.0 MG
     Route: 042
     Dates: start: 20201022, end: 20201022
  3. NEOPROFEN [Suspect]
     Active Substance: IBUPROFEN LYSINE
     Dosage: 3.5 MG
     Route: 042
     Dates: start: 20201023, end: 20201023
  4. NEOPROFEN [Suspect]
     Active Substance: IBUPROFEN LYSINE
     Dosage: 3.5.0 MG
     Route: 042
     Dates: start: 20201024, end: 20201024
  5. AMPICILLIN SODIUM\SULBACTAM SODIUM [Concomitant]
     Active Substance: AMPICILLIN SODIUM\SULBACTAM SODIUM
     Indication: Infection prophylaxis
     Dosage: UNK
     Route: 042
     Dates: start: 20201012, end: 20201014
  6. AZACTAM [Concomitant]
     Active Substance: AZTREONAM
     Indication: Infection prophylaxis
     Dosage: UNK
     Route: 042
     Dates: start: 20201012, end: 20201014
  7. POLYGLOBIN [Concomitant]
     Active Substance: HUMAN IMMUNOGLOBULIN G
     Indication: Infection prophylaxis
     Dosage: UNK
     Route: 042
     Dates: start: 20201012, end: 20201015
  8. CAFFEINE [Concomitant]
     Active Substance: CAFFEINE
     Indication: Prophylaxis
     Dosage: UNK
     Route: 042
     Dates: start: 20201012, end: 20201026
  9. ESPO [Concomitant]
     Indication: Anaemia neonatal
     Dosage: UNK
     Route: 058
     Dates: start: 20201019, end: 20201210
  10. QVAR [Concomitant]
     Active Substance: BECLOMETHASONE DIPROPIONATE
     Indication: Prophylaxis
     Dosage: 50
     Dates: start: 20201016, end: 20201113

REACTIONS (3)
  - Hypothyroidism [Recovering/Resolving]
  - Anaemia [Not Recovered/Not Resolved]
  - Skin erosion [Recovering/Resolving]

NARRATIVE: CASE EVENT DATE: 20201015
